FAERS Safety Report 14602954 (Version 1)
Quarter: 2018Q1

REPORT INFORMATION
  Report Type: Spontaneous
  Country: NZ (occurrence: US)
  Receive Date: 20180305
  Receipt Date: 20180305
  Transmission Date: 20180509
  Serious: Yes (Death)
  Sender: FDA-Public Use
  Company Number: None

PATIENT
  Age: 22 Year
  Sex: Male
  Weight: 114.9 kg

DRUGS (3)
  1. METHOTREXATE. [Suspect]
     Active Substance: METHOTREXATE
     Dates: end: 20180108
  2. ONCASPAR [Suspect]
     Active Substance: PEGASPARGASE
     Dates: end: 20180119
  3. VINCRISTINE SULFATE. [Suspect]
     Active Substance: VINCRISTINE SULFATE
     Dates: end: 20180118

REACTIONS (10)
  - Pancytopenia [None]
  - Agitation [None]
  - Hepatic failure [None]
  - General physical health deterioration [None]
  - Cholelithiasis [None]
  - Multiple organ dysfunction syndrome [None]
  - Drug-induced liver injury [None]
  - Neutropenic sepsis [None]
  - Ascites [None]
  - Cholecystitis [None]

NARRATIVE: CASE EVENT DATE: 20180201
